FAERS Safety Report 10441956 (Version 2)
Quarter: 2014Q3

REPORT INFORMATION
  Report Type: Spontaneous
  Country: DK (occurrence: IT)
  Receive Date: 20140909
  Receipt Date: 20140923
  Transmission Date: 20150326
  Serious: Yes (Other)
  Sender: FDA-Public Use
  Company Number: IT-FRI-1000070450

PATIENT
  Age: 31 Year
  Sex: Female

DRUGS (6)
  1. TAVOR [Concomitant]
     Active Substance: LORAZEPAM
     Dosage: 1 MG
     Route: 048
  2. CITALOPRAM [Suspect]
     Active Substance: CITALOPRAM HYDROBROMIDE
     Indication: PANIC ATTACK
     Dosage: 40 MG/ML
     Route: 042
     Dates: start: 20140714, end: 20140714
  3. SEREUPIN [Concomitant]
     Active Substance: PAROXETINE HYDROCHLORIDE
     Indication: DEPRESSION
     Dosage: 30 MG
     Route: 048
  4. PROZIN [Concomitant]
     Active Substance: CHLORPROMAZINE HYDROCHLORIDE
     Indication: MENTAL DISORDER
     Dosage: 300 MG
     Route: 048
  5. SEROQUEL [Concomitant]
     Active Substance: QUETIAPINE FUMARATE
     Indication: MENTAL DISORDER
     Dosage: 400 MG
     Route: 048
  6. TEGRETOL [Concomitant]
     Active Substance: CARBAMAZEPINE
     Indication: EPILEPSY
     Dosage: 500 MG
     Route: 048

REACTIONS (3)
  - Epilepsy [Recovering/Resolving]
  - Paraesthesia [Recovering/Resolving]
  - Muscle rigidity [Recovering/Resolving]

NARRATIVE: CASE EVENT DATE: 20140714
